FAERS Safety Report 5240059-5 (Version None)
Quarter: 2007Q1

REPORT INFORMATION
  Report Type: 
  Country: None (occurrence: None)
  Receive Date: 20070216
  Receipt Date: 20070205
  Transmission Date: 20070707
  Serious: Yes (Other)
  Sender: FDA-Public Use
  Company Number: US-PFIZER INC-2007009828

PATIENT
  Sex: Male
  Weight: 103 kg

DRUGS (12)
  1. EXUBERA [Suspect]
     Indication: DIABETES MELLITUS
     Route: 055
     Dates: start: 20060927, end: 20070202
  2. ZITHROMAX [Suspect]
     Indication: COUGH
  3. INSULIN DETEMIR [Suspect]
  4. AVANDIA [Suspect]
  5. ALBUTEROL [Suspect]
     Indication: COUGH
     Route: 055
  6. NEXIUM [Suspect]
     Dates: start: 20070125
  7. HUMALOG [Concomitant]
  8. GLUCOPHAGE [Concomitant]
  9. LISINOPRIL [Concomitant]
  10. LIPITOR [Concomitant]
  11. ASPIRIN [Concomitant]
  12. VIAGRA [Concomitant]

REACTIONS (7)
  - CHEST PAIN [None]
  - COUGH [None]
  - DIABETES MELLITUS INADEQUATE CONTROL [None]
  - DYSPNOEA [None]
  - FORCED EXPIRATORY VOLUME DECREASED [None]
  - NASOPHARYNGITIS [None]
  - RESPIRATORY FAILURE [None]
